FAERS Safety Report 5369109-2 (Version None)
Quarter: 2007Q2

REPORT INFORMATION
  Report Type: 
  Country: None (occurrence: None)
  Receive Date: 20070625
  Receipt Date: 20070131
  Transmission Date: 20071010
  Serious: No
  Sender: FDA-Public Use
  Company Number: US-ASTRAZENECA-2007UW01984

PATIENT
  Age: 64 Year
  Sex: Female
  Weight: 137 kg

DRUGS (10)
  1. CRESTOR [Suspect]
     Indication: BLOOD CHOLESTEROL
     Route: 048
     Dates: start: 20061101
  2. NEXIUM [Concomitant]
  3. ATENOLOL [Concomitant]
  4. ENALAPRIL [Concomitant]
  5. DYAZIDE [Concomitant]
  6. PLAVIX [Concomitant]
  7. GLIPIZIDE [Concomitant]
  8. LYRICA [Concomitant]
  9. QUININE SULFATE [Concomitant]
  10. AMBIEN CR [Concomitant]

REACTIONS (1)
  - MALABSORPTION [None]
